APPROVED DRUG PRODUCT: QUININE SULFATE
Active Ingredient: QUININE SULFATE
Strength: 324MG
Dosage Form/Route: CAPSULE;ORAL
Application: A091661 | Product #001 | TE Code: AB
Applicant: TEVA PHARMACEUTICALS USA
Approved: Sep 28, 2012 | RLD: No | RS: No | Type: RX